FAERS Safety Report 11074165 (Version 2)
Quarter: 2015Q2

REPORT INFORMATION
  Report Type: Spontaneous
  Country: US (occurrence: US)
  Receive Date: 20150429
  Receipt Date: 20150525
  Transmission Date: 20150821
  Serious: Yes (Life-Threatening, Hospitalization, Other)
  Sender: FDA-Public Use
  Company Number: US-ROCHE-1567042

PATIENT
  Age: 67 Year
  Sex: Male

DRUGS (1)
  1. TAMIFLU [Suspect]
     Active Substance: OSELTAMIVIR PHOSPHATE
     Indication: CHRONIC MYELOID LEUKAEMIA
     Route: 048
     Dates: start: 20150129, end: 20150207

REACTIONS (10)
  - Syncope [Unknown]
  - Fatigue [Unknown]
  - Graft versus host disease [Unknown]
  - Haemoglobin decreased [Recovering/Resolving]
  - Respiratory distress [Recovered/Resolved]
  - Asthenia [Unknown]
  - Haemolytic anaemia [Recovered/Resolved]
  - Chromaturia [Unknown]
  - Graft versus host disease in liver [Recovering/Resolving]
  - Haemorrhage [Unknown]

NARRATIVE: CASE EVENT DATE: 20150207
